FAERS Safety Report 22387899 (Version 1)
Quarter: 2023Q2

REPORT INFORMATION
  Report Type: Spontaneous
  Country: US (occurrence: US)
  Receive Date: 20230531
  Receipt Date: 20230531
  Transmission Date: 20230722
  Serious: No
  Sender: FDA-Public Use
  Company Number: US-ABBVIE-4773115

PATIENT
  Age: 41 Year
  Sex: Female
  Weight: 64 kg

DRUGS (5)
  1. HUMIRA [Suspect]
     Active Substance: ADALIMUMAB
     Indication: Arthritis
     Dosage: FORM STRENGTH: 40 MILLIGRAM
     Route: 058
     Dates: start: 2020, end: 2022
  2. HUMIRA [Suspect]
     Active Substance: ADALIMUMAB
     Dosage: FORM STRENGTH: 40 MILLIGRAM?MISSED THE HUMIRA MEDICATION
     Route: 058
     Dates: start: 2022, end: 202305
  3. HUMIRA [Suspect]
     Active Substance: ADALIMUMAB
     Dosage: FORM STRENGTH: 40 MILLIGRAM
     Route: 058
     Dates: start: 202305
  4. IRON [Concomitant]
     Active Substance: IRON
     Indication: Product used for unknown indication
  5. PANTOPRAZOLE [Concomitant]
     Active Substance: PANTOPRAZOLE
     Indication: Gastrooesophageal reflux disease

REACTIONS (13)
  - Malaise [Recovered/Resolved]
  - Stress [Recovering/Resolving]
  - Injection site erythema [Recovered/Resolved]
  - Injection site erythema [Unknown]
  - Drug ineffective [Unknown]
  - Injection site pruritus [Recovered/Resolved]
  - Malaise [Recovering/Resolving]
  - Abnormal behaviour [Recovering/Resolving]
  - Device issue [Not Recovered/Not Resolved]
  - Swelling [Recovered/Resolved]
  - Arthritis [Unknown]
  - Therapeutic response shortened [Unknown]
  - Job dissatisfaction [Unknown]

NARRATIVE: CASE EVENT DATE: 20230501
